FAERS Safety Report 15617845 (Version 3)
Quarter: 2019Q1

REPORT INFORMATION
  Report Type: Report from Study
  Country: GB (occurrence: GB)
  Receive Date: 20181114
  Receipt Date: 20190215
  Transmission Date: 20190417
  Serious: Yes (Other)
  Sender: FDA-Public Use
  Company Number: GB-PFIZER INC-2018460324

PATIENT
  Age: 69 Year
  Sex: Female
  Weight: 58 kg

DRUGS (10)
  1. SPIRONOLACTONE. [Suspect]
     Active Substance: SPIRONOLACTONE
     Dosage: UNK
  2. ILOPROST. [Suspect]
     Active Substance: ILOPROST
     Dosage: 2.5 UG, UNK
     Dates: start: 20180911, end: 20180911
  3. ILOPROST. [Suspect]
     Active Substance: ILOPROST
     Dosage: 2.5 UG 6 TIMES A DAY
     Dates: start: 201809
  4. FUROSEMIDE. [Concomitant]
     Active Substance: FUROSEMIDE
     Dosage: 40 MG, 1X/DAY (QD)
  5. SILDENAFIL. [Concomitant]
     Active Substance: SILDENAFIL
     Dosage: 50 MG, UNK
  6. FLUOXETINE [Concomitant]
     Active Substance: FLUOXETINE HYDROCHLORIDE
     Dosage: 20 MG, 1X/DAY (QD)
  7. LANSOPRAZOLE. [Concomitant]
     Active Substance: LANSOPRAZOLE
     Dosage: 60 MG, 1X/DAY (30 MG, BID)
  8. ILOPROST. [Suspect]
     Active Substance: ILOPROST
     Indication: PULMONARY ARTERIAL HYPERTENSION
     Dosage: 5 UG, UNK
     Dates: start: 201804, end: 2018
  9. ILOPROST. [Suspect]
     Active Substance: ILOPROST
     Dosage: 5 UG 6 TIMES A DAY
     Dates: start: 20180911, end: 201809
  10. SILDENAFIL. [Concomitant]
     Active Substance: SILDENAFIL
     Dosage: 50 MG, 3X/DAY (TDS)

REACTIONS (7)
  - Headache [Recovering/Resolving]
  - Vomiting [Recovered/Resolved]
  - Abdominal pain [Recovered/Resolved]
  - Rhinalgia [Recovering/Resolving]
  - Malaise [Unknown]
  - Nausea [Recovering/Resolving]
  - Lower respiratory tract infection [Unknown]

NARRATIVE: CASE EVENT DATE: 2018
